FAERS Safety Report 15922752 (Version 2)
Quarter: 2019Q1

REPORT INFORMATION
  Report Type: Spontaneous
  Country: US (occurrence: US)
  Receive Date: 20190205
  Receipt Date: 20190219
  Transmission Date: 20190417
  Serious: No
  Sender: FDA-Public Use
  Company Number: US-ALLERGAN-1808608US

PATIENT
  Age: 38 Year
  Sex: Female
  Weight: 58.5 kg

DRUGS (2)
  1. SECUKINUMAB. [Concomitant]
     Active Substance: SECUKINUMAB
     Indication: PSORIASIS
     Route: 065
  2. BOTOX COSMETIC [Suspect]
     Active Substance: ONABOTULINUMTOXINA
     Indication: SKIN WRINKLING
     Dosage: UNK
     Route: 030
     Dates: start: 2001, end: 2001

REACTIONS (1)
  - Pregnancy [Unknown]
